FAERS Safety Report 5830907-X (Version None)
Quarter: 2008Q3

REPORT INFORMATION
  Report Type: 
  Country: None (occurrence: None)
  Receive Date: 20080801
  Receipt Date: 20080129
  Transmission Date: 20090109
  Serious: No
  Sender: FDA-Public Use
  Company Number: US-BRISTOL-MYERS SQUIBB COMPANY-14058440

PATIENT
  Age: 69 Year
  Sex: Male

DRUGS (6)
  1. COUMADIN [Suspect]
     Route: 048
     Dates: start: 20030101
  2. NORVASC [Concomitant]
  3. TIKOSYN [Concomitant]
  4. TOPROL-XL [Concomitant]
  5. CIALIS [Concomitant]
  6. LIPITOR [Concomitant]

REACTIONS (1)
  - INTERNATIONAL NORMALISED RATIO FLUCTUATION [None]
